FAERS Safety Report 25112559 (Version 1)
Quarter: 2025Q1

REPORT INFORMATION
  Report Type: Spontaneous
  Country: GB (occurrence: GB)
  Receive Date: 20250324
  Receipt Date: 20250324
  Transmission Date: 20250409
  Serious: Yes (Hospitalization)
  Sender: MYLAN
  Company Number: None

PATIENT
  Age: 51 Year

DRUGS (15)
  1. TRAMADOL [Suspect]
     Active Substance: TRAMADOL
     Indication: Product used for unknown indication
  2. OXYBUTYNIN [Suspect]
     Active Substance: OXYBUTYNIN
     Indication: Product used for unknown indication
     Dosage: 2.5MILLIGRAM,BID (TAKE 1BD INCR TO 2 BD AFTR 1WEEK)
  3. OXYBUTYNIN [Suspect]
     Active Substance: OXYBUTYNIN
  4. PREGABALIN [Suspect]
     Active Substance: PREGABALIN
     Indication: Product used for unknown indication
  5. PREGABALIN [Suspect]
     Active Substance: PREGABALIN
  6. ESOMEPRAZOLE [Concomitant]
     Active Substance: ESOMEPRAZOLE
     Dosage: 40 MILLIGRAM, QD (40 MG GASTRO-RESISTANT TABLETS ONE TO BE TAKEN EACH DAY)
  7. SUMATRIPTAN [Concomitant]
     Active Substance: SUMATRIPTAN
     Indication: Migraine
     Dosage: 50MILLIGRAM,QD (TAKE 1ATLEAST 2HOURS AFTER1STDOSE)
  8. CREON [Concomitant]
     Active Substance: PANCRELIPASE AMYLASE\PANCRELIPASE LIPASE\PANCRELIPASE PROTEASE
  9. LEVOTHYROXINE SODIUM [Concomitant]
     Active Substance: LEVOTHYROXINE SODIUM
     Dosage: 50 MICROGRAM, QD (50 UG TABLETS 1 TABLET/DAY)
  10. LEVOTHYROXINE SODIUM [Concomitant]
     Active Substance: LEVOTHYROXINE SODIUM
     Dosage: 100 MICROGRAM, QD
  11. LEVOTHYROXINE SODIUM [Concomitant]
     Active Substance: LEVOTHYROXINE SODIUM
     Dosage: 25 UG,AM (30-60 MINBEFORE BRKFST,CAFFEINE/OTRMEDS)
  12. VORTIOXETINE [Concomitant]
     Active Substance: VORTIOXETINE
     Dosage: 10 MILLIGRAM, QD (10 MG TABLET ONE BE TAKEN /DAY)
  13. LIDOCAINE [Concomitant]
     Active Substance: LIDOCAINE
     Dosage: 1 DOSAGE FORM, BID (5% MEDICATED PLASTERS APPLY ONCE DAILY FOR UP TO 12 HOURS, FOLLOWED BYA 12-HOUR PLASTER-FREE PERIOD AS DIRECTED )
  14. FOLIC ACID [Concomitant]
     Active Substance: FOLIC ACID
     Dosage: UNK UNK, QD (OD (LAST ISSUED 25/10/25 AS PER EXCHANGE))
  15. NIACINAMIDE\PYRIDOXINE HYDROCHLORIDE\RIBOFLAVIN\THIAMINE HYDROCHLORIDE [Concomitant]
     Active Substance: NIACINAMIDE\PYRIDOXINE HYDROCHLORIDE\RIBOFLAVIN\THIAMINE HYDROCHLORIDE
     Dosage: 1DOSAGE FORM,QD (PT STATE ISSUED FROM CLATTERBRIDGE

REACTIONS (2)
  - Vision blurred [Recovered/Resolved]
  - Dizziness [Recovered/Resolved]
